FAERS Safety Report 6046789-X (Version None)
Quarter: 2009Q1

REPORT INFORMATION
  Report Type: 
  Country: None (occurrence: None)
  Receive Date: 20090122
  Receipt Date: 20090113
  Transmission Date: 20090719
  Serious: Yes (Other)
  Sender: FDA-Public Use
  Company Number: A0724849A

PATIENT
  Age: 52 Year
  Sex: Female

DRUGS (3)
  1. REQUIP [Suspect]
     Indication: PARKINSONISM
     Dosage: 3MG THREE TIMES PER DAY
     Route: 048
     Dates: start: 20080301
  2. PREMPHASE 14/14 [Concomitant]
     Dates: start: 20080401
  3. OTHER MEDICATIONS [Concomitant]

REACTIONS (7)
  - ATROPHY [None]
  - CONSTIPATION [None]
  - DYSPHAGIA [None]
  - DYSPHONIA [None]
  - MICTURITION URGENCY [None]
  - NAUSEA [None]
  - ORTHOSTATIC HYPOTENSION [None]
